FAERS Safety Report 14190829 (Version 2)
Quarter: 2018Q3

REPORT INFORMATION
  Report Type: Spontaneous
  Country: US (occurrence: US)
  Receive Date: 20171115
  Receipt Date: 20180801
  Transmission Date: 20181010
  Serious: Yes (Other)
  Sender: FDA-Public Use
  Company Number: US-LUNDBECK-DKLU2039869

PATIENT
  Age: 13 Year
  Sex: Female

DRUGS (2)
  1. SABRIL [Suspect]
     Active Substance: VIGABATRIN
     Indication: TUBEROUS SCLEROSIS COMPLEX
     Route: 065
  2. SABRIL [Suspect]
     Active Substance: VIGABATRIN
     Indication: EPILEPSY
     Route: 065

REACTIONS (5)
  - Drug withdrawal convulsions [Unknown]
  - Drug dose omission [Unknown]
  - Myoclonus [Unknown]
  - Paraesthesia [Unknown]
  - Change in seizure presentation [Unknown]

NARRATIVE: CASE EVENT DATE: 20180725
